FAERS Safety Report 14773766 (Version 1)
Quarter: 2018Q2

REPORT INFORMATION
  Report Type: Report from Study
  Country: BR (occurrence: BR)
  Receive Date: 20180418
  Receipt Date: 20180418
  Transmission Date: 20180711
  Serious: Yes (Other)
  Sender: FDA-Public Use
  Company Number: PHHY2018BR062710

PATIENT
  Age: 67 Year
  Sex: Male

DRUGS (1)
  1. FORASEQ [Suspect]
     Active Substance: BUDESONIDE\FORMOTEROL FUMARATE
     Indication: CHRONIC OBSTRUCTIVE PULMONARY DISEASE
     Dosage: (BUDESONIDE 400 UG, FORMOTEROL FUMARATE 12 UG)
     Route: 065

REACTIONS (1)
  - Chronic obstructive pulmonary disease [Unknown]
